FAERS Safety Report 9155915 (Version 1)
Quarter: 2013Q1

REPORT INFORMATION
  Report Type: Spontaneous
  Country: IT (occurrence: IT)
  Receive Date: 20130311
  Receipt Date: 20130311
  Transmission Date: 20140127
  Serious: Yes (Hospitalization)
  Sender: FDA-Public Use
  Company Number: IT-PFIZER INC-2013082814

PATIENT
  Age: 63 Year
  Sex: Male

DRUGS (8)
  1. RAMIPRIL [Suspect]
     Indication: HYPERTENSION
     Dosage: 2.5 MG, DAILY
     Route: 048
     Dates: start: 20130130, end: 20130208
  2. LEVOFLOXACIN [Suspect]
     Indication: RESPIRATORY TRACT INFECTION
     Dosage: 500 MG, DAILY
     Route: 048
     Dates: start: 20130130, end: 20130208
  3. CARDIOASPIRIN [Concomitant]
     Indication: ISCHAEMIC CARDIOMYOPATHY
     Dosage: UNK
  4. CARVEDILOL [Concomitant]
     Indication: HYPERTENSION
     Dosage: UNK
  5. CLOPIDOGREL [Concomitant]
     Indication: ISCHAEMIC CARDIOMYOPATHY
     Dosage: UNK
  6. ATORVASTATIN CALCIUM [Concomitant]
     Dosage: UNK
  7. METFORMIN HYDROCHLORIDE [Concomitant]
     Indication: DIABETES MELLITUS
     Dosage: UNK
  8. PANTOPRAZOLE SODIUM [Concomitant]
     Dosage: UNK

REACTIONS (3)
  - Oedema peripheral [Recovered/Resolved]
  - Pruritus [Recovered/Resolved]
  - Localised oedema [Recovered/Resolved]
